FAERS Safety Report 5533080-0 (Version None)
Quarter: 2007Q4

REPORT INFORMATION
  Report Type: 
  Country: None (occurrence: None)
  Receive Date: 20071204
  Receipt Date: 20071129
  Transmission Date: 20080405
  Serious: Yes (Other)
  Sender: FDA-Public Use
  Company Number: GB-WYE-G00704607

PATIENT
  Sex: Female

DRUGS (1)
  1. RAPAMUNE [Suspect]
     Dosage: UNKNOWN

REACTIONS (3)
  - HEPATIC LESION [None]
  - OVARIAN DYSGERMINOMA STAGE UNSPECIFIED [None]
  - SPLENIC LESION [None]
